FAERS Safety Report 20316751 (Version 1)
Quarter: 2022Q1

REPORT INFORMATION
  Report Type: Spontaneous
  Country: JP (occurrence: JP)
  Receive Date: 20220110
  Receipt Date: 20220110
  Transmission Date: 20220423
  Serious: Yes (Hospitalization)
  Sender: FDA-Public Use
  Company Number: JP-LUPIN PHARMACEUTICALS INC.-2021-26520

PATIENT
  Age: 52 Year
  Sex: Female
  Weight: 57 kg

DRUGS (34)
  1. METHYLPREDNISOLONE [Suspect]
     Active Substance: METHYLPREDNISOLONE
     Indication: Steroid therapy
     Dosage: 1000 MILLIGRAM, QD PULSE THERAPY
     Route: 065
  2. METHYLPREDNISOLONE [Suspect]
     Active Substance: METHYLPREDNISOLONE
     Indication: COVID-19 pneumonia
  3. ISOPHANE INSULIN [Suspect]
     Active Substance: INSULIN NOS
     Indication: Hyperglycaemia
     Dosage: 154 INTERNATIONAL UNIT, QD ON DAY 16 OF HOSPITAL STAY
     Route: 058
  4. ISOPHANE INSULIN [Suspect]
     Active Substance: INSULIN NOS
     Dosage: 153 INTERNATIONAL UNIT, QD ON DAY 17 HOSPITAL STAY
     Route: 058
  5. ISOPHANE INSULIN [Suspect]
     Active Substance: INSULIN NOS
     Dosage: 136 INTERNATIONAL UNIT, QD ON DAY 18 OF HOSPITAL STAY
     Route: 058
  6. ISOPHANE INSULIN [Suspect]
     Active Substance: INSULIN NOS
     Dosage: 118 INTERNATIONAL UNIT, QD ON DAY 19 AND 20 OF HOSPITAL STAY
     Route: 058
  7. ISOPHANE INSULIN [Suspect]
     Active Substance: INSULIN NOS
     Dosage: 136 INTERNATIONAL UNIT, QD ON DAY 21 OF HOSPITAL STAY
     Route: 058
  8. ISOPHANE INSULIN [Suspect]
     Active Substance: INSULIN NOS
     Dosage: 118 INTERNATIONAL UNIT, QD ON DAY 22 OF HOSPITAL STAY
     Route: 058
  9. ISOPHANE INSULIN [Suspect]
     Active Substance: INSULIN NOS
     Dosage: 70 INTERNATIONAL UNIT, QD ON DAY 23 OF HOSPITAL STAY
     Route: 058
  10. ISOPHANE INSULIN [Suspect]
     Active Substance: INSULIN NOS
     Dosage: 64 INTERNATIONAL UNIT, QD ON DAY 24 OF HOSPITAL STAY
     Route: 058
  11. FAVIPIRAVIR [Suspect]
     Active Substance: FAVIPIRAVIR
     Indication: COVID-19 pneumonia
     Dosage: 3600 MILLIGRAM, QD
     Route: 065
  12. PREDNISOLONE [Suspect]
     Active Substance: PREDNISOLONE
     Indication: Steroid therapy
     Dosage: 60 MILLIGRAM, QD DAY 13 AND DAY 15 HOSPITAL STAY
     Route: 065
  13. PREDNISOLONE [Suspect]
     Active Substance: PREDNISOLONE
     Indication: COVID-19 pneumonia
     Dosage: 30 MILLIGRAM, QD, ON DAY 20 HOSPITAL STAY
     Route: 065
  14. PREDNISOLONE [Suspect]
     Active Substance: PREDNISOLONE
     Dosage: 15 MILLIGRAM, QD ON DAY 22 OF HOSPITAL STAY
     Route: 065
  15. PREDNISOLONE [Suspect]
     Active Substance: PREDNISOLONE
     Dosage: 10 MILLIGRAM, QD  ON DAY 25 TO 27 OF HOSPITAL STAY
     Route: 065
  16. PREDNISOLONE [Suspect]
     Active Substance: PREDNISOLONE
     Dosage: 5 MILLIGRAM, QD ON DAY 29 HOSPITAL STAY
     Route: 065
  17. CICLESONIDE [Suspect]
     Active Substance: CICLESONIDE
     Indication: Steroid therapy
     Dosage: UNK
     Route: 065
  18. CICLESONIDE [Suspect]
     Active Substance: CICLESONIDE
     Indication: COVID-19 pneumonia
  19. INSULIN NOS [Concomitant]
     Active Substance: INSULIN NOS
     Indication: Hyperglycaemia
     Dosage: 11 INTERNATIONAL UNIT, QD ON DAY 18 HOSPITAL STAY
     Route: 042
  20. INSULIN NOS [Concomitant]
     Active Substance: INSULIN NOS
     Dosage: 37 INTERNATIONAL UNIT, QD ON DAY 19 HOSPITAL STAY
     Route: 042
  21. INSULIN NOS [Concomitant]
     Active Substance: INSULIN NOS
     Dosage: 18 INTERNATIONAL UNIT, QD  ON DAY 20 HOSPITAL STAY
     Route: 042
  22. INSULIN NOS [Concomitant]
     Active Substance: INSULIN NOS
     Dosage: 40 INTERNATIONAL UNIT, QD  ON DAY 22 HOSPITAL STAY
     Route: 042
  23. INSULIN NOS [Concomitant]
     Active Substance: INSULIN NOS
     Dosage: 42 INTERNATIONAL UNIT, QD  ON DAY 23 HOSPITAL STAY
     Route: 042
  24. INSULIN NOS [Concomitant]
     Active Substance: INSULIN NOS
     Dosage: 46 INTERNATIONAL UNIT, QD  ON DAY 24 HOSPITAL STAY
     Route: 042
  25. HEPARIN [Concomitant]
     Active Substance: HEPARIN SODIUM
     Indication: Anticoagulant therapy
     Dosage: UNK
     Route: 065
  26. REPAGLINIDE [Concomitant]
     Active Substance: REPAGLINIDE
     Indication: Hyperglycaemia
     Dosage: 1.5 MILLIGRAM, QD
     Route: 048
  27. VILDAGLIPTIN [Concomitant]
     Active Substance: VILDAGLIPTIN
     Indication: Type 2 diabetes mellitus
     Dosage: 100 MILLIGRAM, QD
     Route: 048
  28. METFORMIN [Concomitant]
     Active Substance: METFORMIN HYDROCHLORIDE
     Indication: Type 2 diabetes mellitus
     Dosage: 1500 MILLIGRAM, QD
     Route: 048
  29. NOREPINEPHRINE [Concomitant]
     Active Substance: NOREPINEPHRINE
     Indication: Vasopressive therapy
     Dosage: 2.4 MILLIGRAM, QD DAY 16 TO DAY 19 OF HOSPITAL STAY
     Route: 065
  30. NOREPINEPHRINE [Concomitant]
     Active Substance: NOREPINEPHRINE
     Dosage: 2.7 MILLIGRAM, QD DAY 20 OF HOSPITAL STAY
     Route: 065
  31. NOREPINEPHRINE [Concomitant]
     Active Substance: NOREPINEPHRINE
     Dosage: 5.2 MILLIGRAM, QD DAY 21 OF HOSPITAL STAY
     Route: 065
  32. NOREPINEPHRINE [Concomitant]
     Active Substance: NOREPINEPHRINE
     Dosage: 13.2 MILLIGRAM, QD DAY 22 OF HOSPITAL STAY
     Route: 065
  33. NOREPINEPHRINE [Concomitant]
     Active Substance: NOREPINEPHRINE
     Dosage: 17.5 MILLIGRAM, QD DAY 23 OF HOSPITAL STAY
     Route: 065
  34. NOREPINEPHRINE [Concomitant]
     Active Substance: NOREPINEPHRINE
     Dosage: 26.9 MILLIGRAM, QD DAY 24 OF HOSPITAL STAY
     Route: 065

REACTIONS (2)
  - Metabolic syndrome [Recovered/Resolved]
  - Off label use [Unknown]
